FAERS Safety Report 7707158-7 (Version None)
Quarter: 2011Q3

REPORT INFORMATION
  Report Type: 
  Country: None (occurrence: None)
  Receive Date: 20110824
  Receipt Date: 20110818
  Transmission Date: 20111222
  Serious: Yes (Life-Threatening, Other)
  Sender: FDA-Public Use
  Company Number: TW-ROXANE LABORATORIES, INC.-2011-RO-01159RO

PATIENT
  Age: 58 Year
  Sex: Female

DRUGS (4)
  1. LORAZEPAM [Suspect]
     Route: 048
  2. SULPRIDE [Suspect]
     Route: 048
  3. BUSPIRONE [Suspect]
     Route: 048
  4. DULOXETIME HYDROCHLORIDE [Suspect]
     Route: 048

REACTIONS (3)
  - OESOPHAGEAL ULCER [None]
  - MULTIPLE DRUG OVERDOSE [None]
  - BEZOAR [None]
